FAERS Safety Report 6804567-5 (Version None)
Quarter: 2010Q2

REPORT INFORMATION
  Report Type: 
  Country: None (occurrence: None)
  Receive Date: 20100628
  Receipt Date: 20070418
  Transmission Date: 20101027
  Serious: No
  Sender: FDA-Public Use
  Company Number: US-PFIZER INC-2007032232

PATIENT
  Sex: Female
  Weight: 79.545 kg

DRUGS (8)
  1. XALATAN [Suspect]
     Indication: GLAUCOMA
     Dosage: 1 DROP EACH EYE AT NIGHT
     Route: 047
     Dates: start: 20070320
  2. LANOXIN [Concomitant]
  3. ATENOLOL [Concomitant]
     Indication: ATRIAL FIBRILLATION
  4. LISINOPRIL [Concomitant]
     Indication: HYPERTENSION
  5. SYNTHROID [Concomitant]
  6. SIMVASTATIN [Concomitant]
     Indication: BLOOD CHOLESTEROL INCREASED
  7. ACETYLSALICYLIC ACID [Concomitant]
  8. VITAMINS [Concomitant]

REACTIONS (2)
  - EYE IRRITATION [None]
  - OCULAR HYPERAEMIA [None]
